FAERS Safety Report 11287806 (Version 1)
Quarter: 2015Q3

REPORT INFORMATION
  Report Type: Spontaneous
  Country: US (occurrence: None)
  Receive Date: 20150720
  Receipt Date: 20150720
  Transmission Date: 20151125
  Serious: Yes (Hospitalization)
  Sender: FDA-Public Use
  Company Number: None

PATIENT
  Age: 53 Year
  Sex: Female

DRUGS (1)
  1. NEULASTA [Suspect]
     Active Substance: PEGFILGRASTIM
     Indication: PRODUCT USED FOR UNKNOWN INDICATION
     Dosage: EVERY 21 DAYS
     Route: 058
     Dates: start: 20150702, end: 20150718

REACTIONS (2)
  - Pyrexia [None]
  - Urticaria [None]

NARRATIVE: CASE EVENT DATE: 20150702
